FAERS Safety Report 4361046-5 (Version None)
Quarter: 2004Q2

REPORT INFORMATION
  Report Type: 
  Country: None (occurrence: None)
  Receive Date: 20040519
  Receipt Date: 20040519
  Transmission Date: 20050107
  Serious: Yes (Other)
  Sender: FDA-Public Use
  Company Number: None

PATIENT
  Age: 59 Year
  Sex: Male
  Weight: 89.8122 kg

DRUGS (1)
  1. CELEBREX [Suspect]
     Indication: ARTHRITIS
     Dosage: 200 MG PO QD
     Route: 048
     Dates: start: 20010101, end: 20040401

REACTIONS (3)
  - DIZZINESS [None]
  - HEADACHE [None]
  - VISUAL FIELD DEFECT [None]
